FAERS Safety Report 25470314 (Version 1)
Quarter: 2025Q2

REPORT INFORMATION
  Report Type: Spontaneous
  Country: US (occurrence: US)
  Receive Date: 20250623
  Receipt Date: 20250623
  Transmission Date: 20250716
  Serious: Yes (Other)
  Sender: AMGEN
  Company Number: US-AMGEN-USASP2025119224

PATIENT
  Age: 66 Year
  Sex: Female

DRUGS (5)
  1. PROLIA [Suspect]
     Active Substance: DENOSUMAB
     Indication: Product used for unknown indication
     Route: 058
     Dates: start: 2015, end: 2015
  2. PROLIA [Suspect]
     Active Substance: DENOSUMAB
  3. EVENITY [Suspect]
     Active Substance: ROMOSOZUMAB-AQQG
     Indication: Osteoporosis
     Dosage: 105 MILLIGRAM, QMO
     Route: 058
     Dates: start: 20250520
  4. CALCIUM\VITAMIN D [Concomitant]
     Active Substance: CALCIUM\VITAMIN D
  5. RECLAST [Concomitant]
     Active Substance: ZOLEDRONIC ACID

REACTIONS (7)
  - Trigeminal nerve disorder [Unknown]
  - Brain operation [Unknown]
  - Facial spasm [Not Recovered/Not Resolved]
  - Hypoaesthesia oral [Recovering/Resolving]
  - Limb discomfort [Recovered/Resolved]
  - Pain in extremity [Unknown]
  - Rash [Recovered/Resolved]

NARRATIVE: CASE EVENT DATE: 20150101
